FAERS Safety Report 16238394 (Version 1)
Quarter: 2019Q2

REPORT INFORMATION
  Report Type: Spontaneous
  Country: US (occurrence: US)
  Receive Date: 20190425
  Receipt Date: 20190425
  Transmission Date: 20190711
  Serious: Yes (Other)
  Sender: FDA-Public Use
  Company Number: US-AMREGENT-20190810

PATIENT
  Sex: Female

DRUGS (2)
  1. NO DRUG NAME [Concomitant]
     Dosage: UNKNOWN
     Route: 065
  2. INJECTAFER [Suspect]
     Active Substance: FERRIC CARBOXYMALTOSE
     Dosage: UNKNOWN; 2 DOSES
     Route: 042

REACTIONS (7)
  - Peripheral coldness [Recovering/Resolving]
  - Myalgia [Unknown]
  - Feeling cold [Recovering/Resolving]
  - Menorrhagia [Recovering/Resolving]
  - Hair texture abnormal [Unknown]
  - Pelvic congestion [Unknown]
  - Alopecia [Unknown]

NARRATIVE: CASE EVENT DATE: 201804
